FAERS Safety Report 10708731 (Version 2)
Quarter: 2015Q1

REPORT INFORMATION
  Report Type: Report from Study
  Country: DE (occurrence: DE)
  Receive Date: 20150113
  Receipt Date: 20150206
  Transmission Date: 20150721
  Serious: Yes (Death)
  Sender: FDA-Public Use
  Company Number: DE-ACTELION-A-NJ2015-111071

PATIENT
  Age: 74 Year
  Sex: Female

DRUGS (11)
  1. TORASEMID [Concomitant]
     Active Substance: TORSEMIDE
  2. L-THYROXIN [Concomitant]
     Active Substance: LEVOTHYROXINE SODIUM
  3. VENTAVIS [Suspect]
     Active Substance: ILOPROST
     Indication: PULMONARY ARTERIAL HYPERTENSION
     Dosage: 5 ?G, 6 TIMES DAILY
     Route: 055
  4. ADCIRCA [Concomitant]
     Active Substance: TADALAFIL
  5. AQUAPHOR [Concomitant]
     Active Substance: PETROLATUM
  6. OMEPRAZOL [Concomitant]
     Active Substance: OMEPRAZOLE
  7. MARCUMAR [Concomitant]
     Active Substance: PHENPROCOUMON
  8. KALINOR [Concomitant]
     Active Substance: POTASSIUM CITRATE
  9. VIGANTOLETTEN [Concomitant]
     Active Substance: CHOLECALCIFEROL
  10. TRACLEER [Concomitant]
     Active Substance: BOSENTAN\BOSENTAN MONOHYDRATE
     Indication: PULMONARY ARTERIAL HYPERTENSION
  11. AMIODARON [Concomitant]
     Active Substance: AMIODARONE

REACTIONS (1)
  - Multi-organ failure [Fatal]

NARRATIVE: CASE EVENT DATE: 201412
